FAERS Safety Report 5869468-8 (Version None)
Quarter: 2008Q3

REPORT INFORMATION
  Report Type: 
  Country: None (occurrence: None)
  Receive Date: 20080828
  Receipt Date: 20080819
  Transmission Date: 20090109
  Serious: Yes (Death)
  Sender: FDA-Public Use
  Company Number: A-CH2008-20518

PATIENT
  Age: 76 Year
  Sex: Female

DRUGS (1)
  1. TRACLEER [Suspect]
     Indication: SCLERODERMA
     Dosage: 125 MG, ORAL
     Route: 048
     Dates: start: 20080415

REACTIONS (3)
  - DISEASE PROGRESSION [None]
  - OFF LABEL USE [None]
  - SCLERODERMA [None]
